FAERS Safety Report 11340411 (Version 4)
Quarter: 2015Q3

REPORT INFORMATION
  Report Type: Spontaneous
  Country: US (occurrence: US)
  Receive Date: 20150805
  Receipt Date: 20150908
  Transmission Date: 20151125
  Serious: Yes (Other)
  Sender: FDA-Public Use
  Company Number: US-PFIZER INC-2015259637

PATIENT
  Age: 50 Year
  Sex: Female
  Weight: 58 kg

DRUGS (7)
  1. PREMARIN [Suspect]
     Active Substance: ESTROGENS, CONJUGATED
     Indication: MENOPAUSAL SYMPTOMS
  2. MEDROL [Concomitant]
     Active Substance: METHYLPREDNISOLONE
     Indication: BACK DISORDER
  3. BLACK COHOSH [Concomitant]
     Active Substance: BLACK COHOSH
     Indication: HOT FLUSH
     Dosage: UNK
  4. MELATONIN [Concomitant]
     Active Substance: MELATONIN
     Indication: INSOMNIA
     Dosage: 3 MG, 1X/DAY (EVERY NIGHT)
  5. PREMARIN [Suspect]
     Active Substance: ESTROGENS, CONJUGATED
     Indication: VULVOVAGINAL DRYNESS
  6. PREMARIN [Suspect]
     Active Substance: ESTROGENS, CONJUGATED
     Indication: ATROPHIC VULVOVAGINITIS
     Dosage: 0.5 G, 2X/WEEK
     Route: 067
     Dates: start: 2013
  7. MOBIC [Concomitant]
     Active Substance: MELOXICAM
     Dosage: 15 MG, 1X/DAY

REACTIONS (6)
  - Intervertebral disc protrusion [Unknown]
  - Spinal column injury [Unknown]
  - Inappropriate schedule of drug administration [Unknown]
  - Drug effect incomplete [Not Recovered/Not Resolved]
  - Autoimmune thyroiditis [Unknown]
  - Product packaging quantity issue [Unknown]

NARRATIVE: CASE EVENT DATE: 2014
